FAERS Safety Report 5214220-X (Version None)
Quarter: 2007Q1

REPORT INFORMATION
  Report Type: 
  Country: None (occurrence: None)
  Receive Date: 20070122
  Receipt Date: 20070115
  Transmission Date: 20070707
  Serious: Yes (Death)
  Sender: FDA-Public Use
  Company Number: FR-BAXTER-2006BH014610

PATIENT
  Age: 58 Year
  Sex: Male

DRUGS (1)
  1. GAMMAGARD S/D [Suspect]
     Indication: DRUG USE FOR UNKNOWN INDICATION
     Route: 042
     Dates: start: 20030303, end: 20030305

REACTIONS (3)
  - BLOOD CREATININE INCREASED [None]
  - CARDIAC ARREST [None]
  - PYREXIA [None]
